FAERS Safety Report 6895876-2 (Version None)
Quarter: 2010Q3

REPORT INFORMATION
  Report Type: 
  Country: None (occurrence: None)
  Receive Date: 20100802
  Receipt Date: 20100715
  Transmission Date: 20110219
  Serious: Yes (Hospitalization, Other)
  Sender: FDA-Public Use
  Company Number: US-BAYER-201020521NA

PATIENT
  Age: 29 Year
  Sex: Female
  Weight: 108 kg

DRUGS (2)
  1. YAZ [Suspect]
     Indication: PRODUCT USED FOR UNKNOWN INDICATION
     Route: 048
     Dates: start: 20071001, end: 20080409
  2. CHANTIX [Concomitant]
     Indication: EX-TOBACCO USER
     Dosage: TOTAL DAILY DOSE: 1.0 MG  UNIT DOSE: 0.5 MG
     Dates: start: 20080409

REACTIONS (10)
  - COGNITIVE DISORDER [None]
  - DYSARTHRIA [None]
  - FACIAL PARESIS [None]
  - GRIP STRENGTH DECREASED [None]
  - HYPOAESTHESIA [None]
  - HYPOREFLEXIA [None]
  - ISCHAEMIC STROKE [None]
  - MUSCULAR WEAKNESS [None]
  - SPEECH DISORDER [None]
  - VIITH NERVE PARALYSIS [None]
